FAERS Safety Report 4439757-2 (Version None)
Quarter: 2004Q3

REPORT INFORMATION
  Report Type: 
  Country: None (occurrence: None)
  Receive Date: 20040831
  Receipt Date: 20040818
  Transmission Date: 20050211
  Serious: Yes (Hospitalization)
  Sender: FDA-Public Use
  Company Number: 2004CG01629

PATIENT
  Age: 87 Year
  Sex: Male
  Weight: 55 kg

DRUGS (9)
  1. ATACAND [Suspect]
     Dosage: 8 MG DAILY PO
     Route: 048
     Dates: end: 20040704
  2. ATACAND [Suspect]
     Dosage: 8 MG DAILY PO
     Route: 048
     Dates: start: 20040711
  3. LASIX [Suspect]
     Dosage: 80 MG BID PO
     Route: 048
     Dates: end: 20040704
  4. LASIX [Suspect]
     Dosage: 80 MG DAILY PO
     Route: 048
     Dates: start: 20040707, end: 20040707
  5. LASIX [Suspect]
     Dosage: 160 MG BID PO
     Route: 048
     Dates: start: 20040708, end: 20040710
  6. LASIX [Suspect]
     Dosage: 80 MG DAILY PO
     Route: 048
     Dates: start: 20040711
  7. ALDACTONE [Suspect]
     Dosage: 75 MG BID PO
     Route: 048
     Dates: end: 20040704
  8. ZYLORIC ^GLAXO WELLCOME^ [Concomitant]
  9. ASPIRIN [Concomitant]

REACTIONS (14)
  - CARDIOMEGALY [None]
  - CHEST PAIN [None]
  - DEHYDRATION [None]
  - DRUG INTERACTION [None]
  - ELECTROCARDIOGRAM QRS COMPLEX PROLONGED [None]
  - FALL [None]
  - HYPOTENSION [None]
  - LUNG CREPITATION [None]
  - NAUSEA [None]
  - RALES [None]
  - RENAL FAILURE ACUTE [None]
  - RIB FRACTURE [None]
  - THIRST [None]
  - VOMITING [None]
